FAERS Safety Report 11886473 (Version 1)
Quarter: 2016Q1

REPORT INFORMATION
  Report Type: Spontaneous
  Country: US (occurrence: US)
  Receive Date: 20160104
  Receipt Date: 20160104
  Transmission Date: 20160526
  Serious: Yes (Other)
  Sender: FDA-Public Use
  Company Number: US-BAYER-2015-497989

PATIENT
  Age: 68 Year
  Sex: Male
  Weight: 108.84 kg

DRUGS (3)
  1. CHOLESTYRAMINE. [Concomitant]
     Active Substance: CHOLESTYRAMINE
     Dosage: UNK, BID
  2. TIKOSYN [Suspect]
     Active Substance: DOFETILIDE
     Dosage: UNK
  3. BAYER LOW DOSE [Suspect]
     Active Substance: ASPIRIN
     Dosage: 81 MG, QD
     Route: 048
     Dates: start: 2013

REACTIONS (5)
  - Drug ineffective [None]
  - Blood pressure abnormal [None]
  - Atrial fibrillation [None]
  - Hypertension [None]
  - Cerebrovascular accident [None]
